FAERS Safety Report 11611343 (Version 3)
Quarter: 2015Q4

REPORT INFORMATION
  Report Type: Report from Study
  Country: US (occurrence: US)
  Receive Date: 20151008
  Receipt Date: 20151113
  Transmission Date: 20160304
  Serious: No
  Sender: FDA-Public Use
  Company Number: PHEH2015US019864

PATIENT
  Age: 53 Year
  Sex: Female
  Weight: 63.72 kg

DRUGS (1)
  1. GILENYA [Suspect]
     Active Substance: FINGOLIMOD HYDROCHLORIDE
     Indication: MULTIPLE SCLEROSIS
     Dosage: 0.5 MG, QD
     Route: 048
     Dates: start: 20150724

REACTIONS (12)
  - Condition aggravated [Not Recovered/Not Resolved]
  - Frustration [Unknown]
  - Hallucination [Unknown]
  - Weight increased [Unknown]
  - Fatigue [Unknown]
  - Vision blurred [Unknown]
  - Ocular discomfort [Unknown]
  - Depressed mood [Unknown]
  - Memory impairment [Not Recovered/Not Resolved]
  - Stress [Unknown]
  - Emotional distress [Unknown]
  - Headache [Not Recovered/Not Resolved]

NARRATIVE: CASE EVENT DATE: 20151027
